FAERS Safety Report 5292473-X (Version None)
Quarter: 2007Q2

REPORT INFORMATION
  Report Type: 
  Country: None (occurrence: None)
  Receive Date: 20070403
  Receipt Date: 20061002
  Transmission Date: 20071010
  Serious: Yes (Other)
  Sender: FDA-Public Use
  Company Number: 2007SP005433

PATIENT
  Age: 48 Year
  Sex: Male

DRUGS (66)
  1. BETAMETHASONE [Suspect]
     Indication: DRUG USE FOR UNKNOWN INDICATION
     Dosage: 2 MG; QD; PO
     Route: 048
     Dates: start: 20050802, end: 20050803
  2. IFOSFAMIDE [Suspect]
     Indication: BONE SARCOMA
     Dosage: SEE IMAGE
     Dates: start: 20050621, end: 20050623
  3. IFOSFAMIDE [Suspect]
     Indication: BONE SARCOMA
     Dosage: SEE IMAGE
     Dates: start: 20050713, end: 20050714
  4. IFOSFAMIDE [Suspect]
     Indication: BONE SARCOMA
     Dosage: SEE IMAGE
     Dates: start: 20050805, end: 20050806
  5. IFOSFAMIDE [Suspect]
     Indication: BONE SARCOMA
     Dosage: SEE IMAGE
     Dates: start: 20050906, end: 20050907
  6. IFOSFAMIDE [Suspect]
     Indication: BONE SARCOMA
     Dosage: SEE IMAGE
     Dates: start: 20050521
  7. DOXORUBICIN HCL [Suspect]
     Indication: BONE SARCOMA
     Dosage: SEE IMAGE
     Route: 042
     Dates: start: 20050621, end: 20050623
  8. DOXORUBICIN HCL [Suspect]
     Indication: BONE SARCOMA
     Dosage: SEE IMAGE
     Route: 042
     Dates: start: 20050713, end: 20050714
  9. DOXORUBICIN HCL [Suspect]
     Indication: BONE SARCOMA
     Dosage: SEE IMAGE
     Route: 042
     Dates: start: 20050805, end: 20050806
  10. DOXORUBICIN HCL [Suspect]
     Indication: BONE SARCOMA
     Dosage: SEE IMAGE
     Route: 042
     Dates: start: 20050906, end: 20050907
  11. DOXORUBICIN HCL [Suspect]
     Indication: BONE SARCOMA
     Dosage: SEE IMAGE
     Route: 042
     Dates: start: 20050521
  12. CISPLATIN [Suspect]
     Indication: BONE SARCOMA
     Dosage: 35 MG; QD; IV
     Route: 042
     Dates: start: 20050621, end: 20050623
  13. CISPLATIN [Suspect]
     Indication: BONE SARCOMA
     Dosage: 35 MG; QD; IV
     Route: 042
     Dates: start: 20050713, end: 20050714
  14. CISPLATIN [Suspect]
     Indication: BONE SARCOMA
     Dosage: 35 MG; QD; IV
     Route: 042
     Dates: start: 20050805, end: 20050806
  15. CISPLATIN [Suspect]
     Indication: BONE SARCOMA
     Dosage: 35 MG; QD; IV
     Route: 042
     Dates: start: 20050906, end: 20050907
  16. METHOTREXATE [Suspect]
     Indication: BONE SARCOMA
     Dosage: SEE IMAGE
     Route: 042
     Dates: start: 20050524, end: 20050524
  17. METHOTREXATE [Suspect]
     Indication: BONE SARCOMA
     Dosage: SEE IMAGE
     Route: 042
     Dates: start: 20050606, end: 20050606
  18. METHOTREXATE [Suspect]
     Indication: BONE SARCOMA
     Dosage: SEE IMAGE
     Route: 042
     Dates: start: 20050831, end: 20050831
  19. MEDICON /00048102/ [Concomitant]
  20. OXYCONTIN [Concomitant]
  21. UROMITEXAN [Concomitant]
  22. DOBUTREX [Concomitant]
  23. DIAMOX /00016901/ [Concomitant]
  24. LEUCOVORIN CALCIUM [Concomitant]
  25. ISODINE GARGLE [Concomitant]
  26. PURSENNID [Concomitant]
  27. BIOFERMAN R [Concomitant]
  28. LASIX [Concomitant]
  29. SELBEX [Concomitant]
  30. MAGNESIUM OXIDE [Concomitant]
  31. LAXOBERON [Concomitant]
  32. MAGNESIUM OXIDE [Concomitant]
  33. LAXOBERON [Concomitant]
  34. HACHIAZULE [Concomitant]
  35. LECICARBON [Concomitant]
  36. SALIPARA-CODEINE [Concomitant]
  37. PANIMYCIN [Concomitant]
  38. BROCIN [Concomitant]
  39. APRICOT KERNEL WATER [Concomitant]
  40. SIMPLE SYRUP [Concomitant]
  41. WATER PURIFIED [Concomitant]
  42. CALONAL [Concomitant]
  43. GASTER D [Concomitant]
  44. CLARITHROMYCIN [Concomitant]
  45. VOLTAREN [Concomitant]
  46. MARZULENE-S [Concomitant]
  47. OPSO [Concomitant]
  48. KYTRIL [Concomitant]
  49. DEXART [Concomitant]
  50. SOLDEM 3A [Concomitant]
  51. MEYLON [Concomitant]
  52. DORMICUM [Concomitant]
  53. SOLDEM 1 [Concomitant]
  54. NEU-UP [Concomitant]
  55. ALBUMIN (HUMAN) [Concomitant]
  56. NEO-MINOPHAGEN C [Concomitant]
  57. ADONA [Concomitant]
  58. TRANSAMIN [Concomitant]
  59. PREDOPA [Concomitant]
  60. SOLU-CORTEF [Concomitant]
  61. CHLOR-TRIMETON [Concomitant]
  62. PICIBANIL [Concomitant]
  63. ATARAX [Concomitant]
  64. OPYSTAN [Concomitant]
  65. CEFAMEZIN [Concomitant]
  66. SOLU-MEDROL [Concomitant]

REACTIONS (3)
  - BONE MARROW FAILURE [None]
  - NEUTROPHIL COUNT DECREASED [None]
  - WHITE BLOOD CELL COUNT DECREASED [None]
